FAERS Safety Report 7024083-8 (Version None)
Quarter: 2010Q4

REPORT INFORMATION
  Report Type: 
  Country: None (occurrence: None)
  Receive Date: 20101001
  Receipt Date: 20100920
  Transmission Date: 20110411
  Serious: No
  Sender: FDA-Public Use
  Company Number: US-JNJFOC-20100906774

PATIENT
  Sex: Male
  Weight: 88.45 kg

DRUGS (4)
  1. SANDOZ FENTANYL TRANSDERMAL SYSTEM [Suspect]
     Indication: BACK PAIN
     Route: 062
  2. FENTANYL CITRATE [Suspect]
     Indication: BACK PAIN
     Route: 062
  3. TYLENOL PM [Concomitant]
     Indication: SEASONAL ALLERGY
     Dosage: AS NEEDED
     Route: 048
  4. TYLENOL PM [Concomitant]
     Indication: SLEEP DISORDER
     Dosage: AS NEEDED
     Route: 048

REACTIONS (7)
  - APPLICATION SITE BURN [None]
  - APPLICATION SITE REACTION [None]
  - APPLICATION SITE SCAB [None]
  - APPLICATION SITE SCAR [None]
  - INADEQUATE ANALGESIA [None]
  - PRODUCT QUALITY ISSUE [None]
  - WRONG TECHNIQUE IN DRUG USAGE PROCESS [None]
